FAERS Safety Report 8945279 (Version 1)
Quarter: 2012Q4

REPORT INFORMATION
  Report Type: 
  Country: US (occurrence: US)
  Receive Date: 20121205
  Receipt Date: 20121205
  Transmission Date: 20130627
  Serious: Yes (Hospitalization, Other)
  Sender: FDA-Public Use
  Company Number: US-PFIZER INC-2012301407

PATIENT
  Age: 61 Year
  Sex: Female
  Weight: 49.89 kg

DRUGS (2)
  1. VFEND [Suspect]
     Indication: GRAFT VERSUS HOST DISEASE
     Dosage: 200 mg, 2x/day
     Route: 048
  2. ACYCLOVIR [Concomitant]
     Dosage: UNK

REACTIONS (7)
  - Arthropathy [Unknown]
  - Aphagia [Unknown]
  - Burns third degree [Unknown]
  - Pain [Unknown]
  - Mouth ulceration [Unknown]
  - Liver disorder [Unknown]
  - Liver function test abnormal [Unknown]
